FAERS Safety Report 4560649-2 (Version None)
Quarter: 2005Q1

REPORT INFORMATION
  Report Type: 
  Country: None (occurrence: None)
  Receive Date: 20050125
  Receipt Date: 20050125
  Transmission Date: 20050727
  Serious: Yes (Death)
  Sender: FDA-Public Use
  Company Number: None

PATIENT
  Age: 4 Year
  Sex: Male
  Weight: 18.5 kg

DRUGS (1)
  1. DOCETAXEL 60 MG/M2/WEEK [Suspect]
     Indication: ACUTE LYMPHOCYTIC LEUKAEMIA
     Dosage: 45 MG IV /WEEK
     Route: 042
     Dates: start: 20040426, end: 20040510

REACTIONS (7)
  - BONE PAIN [None]
  - DISEASE PROGRESSION [None]
  - GINGIVAL BLEEDING [None]
  - NEUTROPENIA [None]
  - ORAL INTAKE REDUCED [None]
  - PYREXIA [None]
  - VOMITING [None]
